FAERS Safety Report 6849623-0 (Version None)
Quarter: 2010Q3

REPORT INFORMATION
  Report Type: 
  Country: None (occurrence: None)
  Receive Date: 20100716
  Receipt Date: 20071002
  Transmission Date: 20110219
  Serious: No
  Sender: FDA-Public Use
  Company Number: US-PFIZER INC-2007084708

PATIENT
  Sex: Male
  Weight: 72.7 kg

DRUGS (5)
  1. CHANTIX [Suspect]
     Indication: SMOKING CESSATION THERAPY
     Dates: start: 20070901, end: 20070930
  2. LIPITOR [Concomitant]
  3. CARDIAC THERAPY [Concomitant]
     Indication: HYPERTENSION
  4. NASAL PREPARATIONS [Concomitant]
  5. DRUG, UNSPECIFIED [Concomitant]

REACTIONS (2)
  - FATIGUE [None]
  - NAUSEA [None]
